FAERS Safety Report 8970932 (Version 2)
Quarter: 2013Q2

REPORT INFORMATION
  Report Type: Spontaneous
  Country: JP (occurrence: JP)
  Receive Date: 20121218
  Receipt Date: 20130422
  Transmission Date: 20140414
  Serious: Yes (Hospitalization)
  Sender: FDA-Public Use
  Company Number: PHHY2012JP116385

PATIENT
  Age: 45 Year
  Sex: Male
  Weight: 65 kg

DRUGS (12)
  1. TASIGNA [Suspect]
     Indication: CHRONIC MYELOID LEUKAEMIA
     Dosage: 300 MG, DAILY
     Route: 048
     Dates: start: 20121005, end: 20121029
  2. TASIGNA [Suspect]
     Dosage: 600 MG, DAILY
     Route: 048
     Dates: start: 20121030, end: 20121126
  3. INSULIN [Concomitant]
     Indication: DIABETES MELLITUS
     Route: 058
  4. METGLUCO [Concomitant]
     Indication: DIABETES MELLITUS
     Dosage: 750 MG, UNK
     Route: 048
     Dates: start: 20121004, end: 20121022
  5. GASTER D [Concomitant]
     Dosage: 20 MG, UNK
     Route: 048
  6. MUCOSTA [Concomitant]
     Dosage: 100 MG, UNK
     Route: 048
  7. JANUVIA [Concomitant]
     Dosage: 50 MG, UNK
     Route: 048
  8. MICARDIS [Concomitant]
     Dosage: 20 MG, UNK
     Route: 048
  9. AMLODIPINE [Concomitant]
     Dosage: 5 MG, UNK
     Route: 048
  10. NERISONA [Concomitant]
  11. LANTUS [Concomitant]
  12. HUMALOG [Concomitant]

REACTIONS (4)
  - Drug-induced liver injury [Recovered/Resolved]
  - Blood bilirubin increased [Recovered/Resolved]
  - Gamma-glutamyltransferase increased [Recovered/Resolved]
  - Rash [Recovered/Resolved]
